FAERS Safety Report 8492795-5 (Version None)
Quarter: 2012Q3

REPORT INFORMATION
  Report Type: 
  Country: None (occurrence: None)
  Receive Date: 20120706
  Receipt Date: 20120702
  Transmission Date: 20120928
  Serious: Yes (Other)
  Sender: FDA-Public Use
  Company Number: ES-PFIZER INC-2012159416

PATIENT
  Age: 54 Year
  Sex: Female

DRUGS (4)
  1. CYTARABINE [Suspect]
     Indication: ACUTE MYELOID LEUKAEMIA
     Dosage: 200 MG/M2 PER DAY FOR 7 DAYS, CYCLIC
  2. CYTARABINE [Suspect]
     Dosage: 3000 MG/M2 EVERY 12 HOURS FOR 4 DAYS, CYCLIC
  3. IDARUBICIN HCL [Suspect]
     Indication: ACUTE MYELOID LEUKAEMIA
     Dosage: 12 MG/M2 PER DAY FOR 3 DAYS, CYCLIC
  4. DAUNORUBICIN HCL [Suspect]
     Indication: ACUTE MYELOID LEUKAEMIA
     Dosage: 45 MG/M2 PER DAY FOR 3 DAYS, CYCLIC

REACTIONS (2)
  - BONE MARROW FAILURE [None]
  - OSTEONECROSIS OF JAW [None]
